FAERS Safety Report 7710151-1 (Version None)
Quarter: 2011Q3

REPORT INFORMATION
  Report Type: 
  Country: None (occurrence: None)
  Receive Date: 20110825
  Receipt Date: 20110823
  Transmission Date: 20111222
  Serious: Yes (Hospitalization, Other)
  Sender: FDA-Public Use
  Company Number: JP-PFIZER INC-2011158744

PATIENT
  Age: 54 Year
  Sex: Male
  Weight: 50 kg

DRUGS (6)
  1. ZOLOFT [Suspect]
     Dosage: 50 MG, A DAY
     Route: 048
     Dates: start: 20100101, end: 20110612
  2. IRRIBOW [Suspect]
     Dosage: UNK
     Route: 048
     Dates: start: 20101108, end: 20110615
  3. LENDORMIN [Concomitant]
     Dosage: UNK
     Route: 048
  4. ABILIT [Suspect]
     Dosage: UNK
     Route: 048
     Dates: end: 20110615
  5. ZOLOFT [Suspect]
     Indication: DEPRESSION
     Dosage: 25 MG, A DAY
     Route: 048
     Dates: start: 20101011, end: 20100101
  6. U-PAN [Concomitant]
     Dosage: UNK
     Route: 048
     Dates: end: 20110615

REACTIONS (1)
  - HEPATITIS FULMINANT [None]
